FAERS Safety Report 7514496-X (Version None)
Quarter: 2011Q2

REPORT INFORMATION
  Report Type: 
  Country: None (occurrence: None)
  Receive Date: 20110601
  Receipt Date: 20101124
  Transmission Date: 20111010
  Serious: No
  Sender: FDA-Public Use
  Company Number: US-BAYER-2010-004283

PATIENT
  Age: 51 Year
  Sex: Male

DRUGS (1)
  1. MAGNEVIST [Suspect]
     Indication: ARTERIOGRAM CAROTID
     Dosage: 40 ML, ONCE
     Route: 042
     Dates: start: 20101124, end: 20101124

REACTIONS (1)
  - LIP SWELLING [None]
